FAERS Safety Report 4565158-2 (Version None)
Quarter: 2005Q1

REPORT INFORMATION
  Report Type: 
  Country: None (occurrence: None)
  Receive Date: 20050126
  Receipt Date: 20050118
  Transmission Date: 20050727
  Serious: Yes (Other)
  Sender: FDA-Public Use
  Company Number: 2005015591

PATIENT
  Sex: Female

DRUGS (2)
  1. SULPERAZON        (SULBACTAM, CEFOPERAZONE) [Suspect]
     Indication: ILL-DEFINED DISORDER
     Dosage: 1 D, INTRAVENOUS
     Route: 042
  2. CISPLATIN [Concomitant]

REACTIONS (3)
  - BLOOD PRESSURE SYSTOLIC DECREASED [None]
  - EXANTHEM [None]
  - SHOCK [None]
